FAERS Safety Report 19775662 (Version 1)
Quarter: 2021Q3

REPORT INFORMATION
  Report Type: Spontaneous
  Country: US (occurrence: US)
  Receive Date: 20210901
  Receipt Date: 20210901
  Transmission Date: 20211014
  Serious: No
  Sender: FDA-Public Use
  Company Number: US-SA-2021SA284044

PATIENT
  Age: 52 Year
  Sex: Female

DRUGS (1)
  1. KEVZARA [Suspect]
     Active Substance: SARILUMAB
     Indication: RHEUMATOID ARTHRITIS
     Dosage: 200 MG, Q3W
     Route: 058
     Dates: start: 202108

REACTIONS (6)
  - Skin irritation [Unknown]
  - Rash erythematous [Unknown]
  - Injection site swelling [Unknown]
  - Injection site exfoliation [Unknown]
  - Product use issue [Unknown]
  - Injection site rash [Unknown]

NARRATIVE: CASE EVENT DATE: 202108
